FAERS Safety Report 4766206-7 (Version None)
Quarter: 2005Q3

REPORT INFORMATION
  Report Type: 
  Country: None (occurrence: None)
  Receive Date: 20050909
  Receipt Date: 20050825
  Transmission Date: 20060218
  Serious: Yes (Hospitalization, Other)
  Sender: FDA-Public Use
  Company Number: B0250448B

PATIENT
  Age: 5 Day
  Sex: Male
  Weight: 3.4927 kg

DRUGS (1)
  1. PAXIL [Suspect]
     Dosage: TRANSPLACENTARY
     Route: 064

REACTIONS (8)
  - CHILLS [None]
  - CRYING [None]
  - DRUG EXPOSURE DURING PREGNANCY [None]
  - DRUG WITHDRAWAL SYNDROME NEONATAL [None]
  - HYPERTONIA NEONATAL [None]
  - IRRITABILITY [None]
  - NEONATAL DISORDER [None]
  - POOR SUCKING REFLEX [None]
